FAERS Safety Report 7584589-X (Version None)
Quarter: 2011Q2

REPORT INFORMATION
  Report Type: 
  Country: None (occurrence: None)
  Receive Date: 20110630
  Receipt Date: 20110623
  Transmission Date: 20111010
  Serious: Yes (Hospitalization)
  Sender: FDA-Public Use
  Company Number: US-B.I. PHARMACEUTICALS,INC./RIDGEFIELD-2011-BP-10089BP

PATIENT
  Age: 71 Year
  Sex: Male

DRUGS (13)
  1. ENOXAPARIN [Concomitant]
     Dosage: 100 MG
     Route: 058
     Dates: start: 20110407
  2. SUPPLEMENTAL OXYGEN [Concomitant]
  3. FISH OIL [Concomitant]
     Dosage: 2000 MG
     Route: 048
  4. PRADAXA [Suspect]
     Indication: ATRIAL FLUTTER
     Dosage: 300 MG
     Route: 048
     Dates: start: 20110201, end: 20110403
  5. COUMADIN [Concomitant]
     Dosage: 5 MG
     Route: 048
  6. AVELOX [Concomitant]
     Dosage: 400 MG
     Route: 048
     Dates: start: 20110407
  7. NIFEDIPINE [Concomitant]
     Indication: RAYNAUD'S PHENOMENON
     Dosage: 30 MG
     Route: 048
  8. LOVINOX [Concomitant]
  9. VIACTIV [Concomitant]
  10. MULTI-VITAMIN [Concomitant]
     Route: 048
  11. CALCIUM SUPPLEMENTATION [Concomitant]
     Route: 048
  12. SIMVASTATIN [Concomitant]
     Dosage: 10 MG
     Route: 048
  13. BONIVA [Concomitant]
     Route: 048

REACTIONS (4)
  - PULMONARY EMBOLISM [None]
  - PNEUMONIA [None]
  - CHEST PAIN [None]
  - HAEMOPTYSIS [None]
